FAERS Safety Report 6723252-1 (Version None)
Quarter: 2010Q2

REPORT INFORMATION
  Report Type: 
  Country: None (occurrence: None)
  Receive Date: 20100513
  Receipt Date: 20100503
  Transmission Date: 20101027
  Serious: Yes (Hospitalization, Other)
  Sender: FDA-Public Use
  Company Number: US-ABBOTT-10P-163-0642290-00

PATIENT
  Sex: Male
  Weight: 100.79 kg

DRUGS (7)
  1. HUMIRA [Suspect]
     Indication: RHEUMATOID ARTHRITIS
     Dates: start: 20040101, end: 20040101
  2. HUMIRA [Suspect]
     Dates: start: 20040101, end: 20090401
  3. HUMIRA [Suspect]
     Dates: start: 20090401, end: 20090622
  4. HUMIRA [Suspect]
     Dates: start: 20090701
  5. NORVASC [Concomitant]
     Indication: HYPERTENSION
     Dosage: DAILY
  6. CELEBREX [Concomitant]
     Indication: RHEUMATOID ARTHRITIS
     Dosage: DAILY
  7. LIPITOR [Concomitant]
     Indication: BLOOD CHOLESTEROL INCREASED
     Dosage: DAILY

REACTIONS (5)
  - AORTIC ANEURYSM [None]
  - BACK PAIN [None]
  - POLLAKIURIA [None]
  - POST PROCEDURAL COMPLICATION [None]
  - RHEUMATOID ARTHRITIS [None]
